FAERS Safety Report 18242405 (Version 3)
Quarter: 2021Q1

REPORT INFORMATION
  Report Type: Report from Study
  Country: US (occurrence: US)
  Receive Date: 20200908
  Receipt Date: 20210323
  Transmission Date: 20210419
  Serious: Yes (Hospitalization)
  Sender: FDA-Public Use
  Company Number: US-EISAI MEDICAL RESEARCH-EC-2020-074879

PATIENT
  Age: 68 Year
  Sex: Female

DRUGS (4)
  1. METOPROLOL. [Concomitant]
     Active Substance: METOPROLOL
  2. LENVIMA [Suspect]
     Active Substance: LENVATINIB
     Indication: ENDOMETRIAL CANCER
     Route: 048
     Dates: start: 20200512, end: 20200918
  3. AMLODIPINE [Concomitant]
     Active Substance: AMLODIPINE BESYLATE
  4. LENVIMA [Suspect]
     Active Substance: LENVATINIB
     Route: 048
     Dates: start: 20210213

REACTIONS (16)
  - Fatigue [Unknown]
  - Hypoaesthesia [Not Recovered/Not Resolved]
  - Heart rate increased [Recovering/Resolving]
  - Vaginal discharge [Unknown]
  - Vaginal haemorrhage [Recovering/Resolving]
  - Blood pressure increased [Recovering/Resolving]
  - Muscle spasms [Recovered/Resolved]
  - Constipation [Recovering/Resolving]
  - Rectal haemorrhage [Recovering/Resolving]
  - Vulvovaginal pain [Unknown]
  - Dysphonia [Recovering/Resolving]
  - Abdominal pain [Not Recovered/Not Resolved]
  - Haemorrhoids [Unknown]
  - Vaginal disorder [Unknown]
  - Oral pain [Unknown]
  - Pruritus [Recovering/Resolving]

NARRATIVE: CASE EVENT DATE: 2020
